FAERS Safety Report 5112534-5 (Version None)
Quarter: 2006Q3

REPORT INFORMATION
  Report Type: 
  Country: None (occurrence: None)
  Receive Date: 20060802
  Receipt Date: 20060411
  Transmission Date: 20061208
  Serious: No
  Sender: FDA-Public Use
  Company Number: 200613603US

PATIENT
  Age: 89 Year
  Sex: Female
  Weight: 59.09 kg

DRUGS (3)
  1. KETEK [Suspect]
     Indication: COUGH
     Dosage: 400 MG BID PO
     Route: 048
     Dates: start: 20060323
  2. WARFARIN SODIUM [Concomitant]
  3. HYDROCHLOROTHIAZIDE [Concomitant]

REACTIONS (2)
  - BLOOD CREATININE DECREASED [None]
  - BLOOD SODIUM DECREASED [None]
